FAERS Safety Report 5488007-7 (Version None)
Quarter: 2007Q4

REPORT INFORMATION
  Report Type: 
  Country: None (occurrence: None)
  Receive Date: 20071001
  Receipt Date: 20070706
  Transmission Date: 20080405
  Serious: Yes (Other)
  Sender: FDA-Public Use
  Company Number: 200713772GDS

PATIENT
  Age: 34 Year
  Sex: Female

DRUGS (4)
  1. CIPROFLOXACIN [Suspect]
     Indication: DRUG USE FOR UNKNOWN INDICATION
     Dosage: 500 MG, BID, ORAL
     Route: 048
  2. MIACALCIN [Concomitant]
  3. PROZAC [Concomitant]
  4. TRYPTOPHAN [Concomitant]

REACTIONS (4)
  - ABNORMAL DREAMS [None]
  - AGITATION [None]
  - ASTHENIA [None]
  - MANIA [None]
